FAERS Safety Report 17295850 (Version 1)
Quarter: 2020Q1

REPORT INFORMATION
  Report Type: Spontaneous
  Country: US (occurrence: US)
  Receive Date: 20200121
  Receipt Date: 20200121
  Transmission Date: 20200409
  Serious: No
  Sender: FDA-Public Use
  Company Number: US-009507513-2001USA005651

PATIENT
  Sex: Female

DRUGS (2)
  1. PRINIVIL [Suspect]
     Active Substance: LISINOPRIL
  2. COZAAR [Suspect]
     Active Substance: LOSARTAN POTASSIUM

REACTIONS (4)
  - Feeling jittery [Unknown]
  - Rash [Unknown]
  - Drug hypersensitivity [Unknown]
  - Adverse reaction [Unknown]
